FAERS Safety Report 8150673-5 (Version None)
Quarter: 2012Q1

REPORT INFORMATION
  Report Type: 
  Country: None (occurrence: None)
  Receive Date: 20120220
  Receipt Date: 20120214
  Transmission Date: 20120608
  Serious: Yes (Death, Other)
  Sender: FDA-Public Use
  Company Number: PHHY2012FR013655

PATIENT
  Age: 54 Year
  Sex: Female

DRUGS (4)
  1. SANDOSTATIN [Suspect]
     Indication: HYPOGLYCAEMIA
     Dosage: 2500 UG, UNK
     Route: 058
  2. DIAZOXIDE [Concomitant]
  3. DEXTROSE [Concomitant]
  4. SANDOSTATIN [Suspect]
     Dosage: 500 UG, BID
     Route: 058

REACTIONS (4)
  - HYPOGLYCAEMIA [None]
  - DRUG INEFFECTIVE [None]
  - ENTEROCOCCAL INFECTION [None]
  - SEPSIS [None]
